FAERS Safety Report 22321260 (Version 1)
Quarter: 2023Q2

REPORT INFORMATION
  Report Type: Spontaneous
  Country: US (occurrence: US)
  Receive Date: 20230515
  Receipt Date: 20230515
  Transmission Date: 20230722
  Serious: No
  Sender: FDA-Public Use
  Company Number: US-PFIZER INC-PV202300084264

PATIENT
  Age: 63 Year
  Sex: Female

DRUGS (1)
  1. IBRANCE [Suspect]
     Active Substance: PALBOCICLIB
     Indication: Breast cancer metastatic
     Dosage: 21 DAYS ON 7 DAYS OFF

REACTIONS (5)
  - Pelvic pain [Unknown]
  - Dizziness [Unknown]
  - Pain in jaw [Unknown]
  - Back pain [Unknown]
  - Balance disorder [Unknown]
